FAERS Safety Report 5475031-3 (Version None)
Quarter: 2007Q4

REPORT INFORMATION
  Report Type: 
  Country: None (occurrence: None)
  Receive Date: 20071002
  Receipt Date: 20070924
  Transmission Date: 20080405
  Serious: Yes (Hospitalization, Other)
  Sender: FDA-Public Use
  Company Number: US-ELI_LILLY_AND_COMPANY-US200709005627

PATIENT
  Age: 72 Year
  Sex: Female

DRUGS (15)
  1. HUMALOG [Suspect]
     Indication: DIABETES MELLITUS
     Dosage: 50 U, UNK
  2. HUMALOG [Suspect]
     Dates: start: 20000101, end: 20030101
  3. HUMALOG [Suspect]
     Dosage: UNK, UNK
     Dates: start: 20030101
  4. LANTUS [Concomitant]
  5. ASPIRIN [Concomitant]
  6. LASIX [Concomitant]
  7. POTASSIUM CHLORIDE [Concomitant]
  8. VYTORIN [Concomitant]
  9. HYDRALAZINE HCL [Concomitant]
  10. LOPRESSOR [Concomitant]
  11. PAXIL [Concomitant]
  12. CLONIDINE [Concomitant]
  13. PREMARIN [Concomitant]
  14. CALCIUM [Concomitant]
  15. LEVOTHYROXINE SODIUM [Concomitant]

REACTIONS (10)
  - ARTHRALGIA [None]
  - DIARRHOEA [None]
  - DIVERTICULITIS [None]
  - DIZZINESS [None]
  - INTESTINAL HAEMORRHAGE [None]
  - KNEE ARTHROPLASTY [None]
  - NAUSEA [None]
  - TRANSIENT ISCHAEMIC ATTACK [None]
  - VISION BLURRED [None]
  - WRONG DRUG ADMINISTERED [None]
